FAERS Safety Report 11953795 (Version 1)
Quarter: 2016Q1

REPORT INFORMATION
  Report Type: Other
  Country: US (occurrence: US)
  Receive Date: 20160126
  Receipt Date: 20160126
  Transmission Date: 20160526
  Serious: Yes (Other)
  Sender: FDA-Public Use
  Company Number: US-GUTHY-RENKER LLC-1046920

PATIENT
  Age: 14 Year
  Sex: Female

DRUGS (2)
  1. MULTI VITAMIN [Concomitant]
     Active Substance: VITAMINS
  2. PROACTIV PLUS SKIN PURIFYING MASK [Suspect]
     Active Substance: SULFUR
     Indication: ACNE
     Route: 061
     Dates: start: 20151122, end: 20151224

REACTIONS (2)
  - Dizziness [Recovered/Resolved]
  - Syncope [None]

NARRATIVE: CASE EVENT DATE: 20151224
